FAERS Safety Report 5248875-0 (Version None)
Quarter: 2007Q1

REPORT INFORMATION
  Report Type: 
  Country: None (occurrence: None)
  Receive Date: 20070228
  Receipt Date: 20060516
  Transmission Date: 20070707
  Serious: No
  Sender: FDA-Public Use
  Company Number: US-GLAXOSMITHKLINE-A0599783A

PATIENT
  Age: 31 Year
  Sex: Male

DRUGS (1)
  1. VALTREX [Suspect]
     Indication: HERPES VIRUS INFECTION
     Dosage: 1G PER DAY
     Route: 048

REACTIONS (5)
  - DRUG INEFFECTIVE [None]
  - HERPES VIRUS INFECTION [None]
  - PAIN [None]
  - PRURITUS [None]
  - RASH ERYTHEMATOUS [None]
